FAERS Safety Report 5407916-8 (Version None)
Quarter: 2007Q3

REPORT INFORMATION
  Report Type: 
  Country: None (occurrence: None)
  Receive Date: 20070803
  Receipt Date: 20070727
  Transmission Date: 20080115
  Serious: Yes (Hospitalization, Other)
  Sender: FDA-Public Use
  Company Number: 07082194

PATIENT
  Age: 72 Year
  Sex: Female

DRUGS (6)
  1. PHENYTOIN SODIUM [Suspect]
     Indication: CONVULSION
     Dosage: 100 MG, TID, ORAL
     Route: 048
     Dates: start: 20070630, end: 20070721
  2. PROTONIX [Concomitant]
  3. DOLOL (TRAMADOL) [Concomitant]
  4. TEMAZEPAM [Concomitant]
  5. DEXAMETHASONE TAB [Concomitant]
  6. CLONAZEPAM [Concomitant]

REACTIONS (1)
  - ANTICONVULSANT DRUG LEVEL DECREASED [None]
